FAERS Safety Report 8377510-8 (Version None)
Quarter: 2012Q2

REPORT INFORMATION
  Report Type: 
  Country: None (occurrence: None)
  Receive Date: 20120522
  Receipt Date: 20120109
  Transmission Date: 20120825
  Serious: No
  Sender: FDA-Public Use
  Company Number: US-ASTRAZENECA-2012SE01528

PATIENT
  Age: 37 Year
  Sex: Male

DRUGS (6)
  1. PRILOSEC [Suspect]
     Route: 048
     Dates: start: 20110101, end: 20110101
  2. CELEXA [Suspect]
     Indication: ANXIETY
     Route: 065
     Dates: start: 20010101
  3. PRILOSEC [Suspect]
     Indication: GASTROOESOPHAGEAL REFLUX DISEASE
     Route: 048
     Dates: start: 20060101, end: 20110101
  4. PRILOSEC [Suspect]
     Route: 048
     Dates: start: 20110101, end: 20111101
  5. CELEXA [Suspect]
     Indication: DEPRESSION
     Route: 065
     Dates: start: 20010101
  6. CALCIUM CARBONATE [Concomitant]

REACTIONS (1)
  - WITHDRAWAL SYNDROME [None]
